FAERS Safety Report 14090922 (Version 1)
Quarter: 2017Q4

REPORT INFORMATION
  Report Type: Report from Study
  Country: FR (occurrence: FR)
  Receive Date: 20171016
  Receipt Date: 20171016
  Transmission Date: 20180321
  Serious: Yes (Hospitalization, Other)
  Sender: FDA-Public Use
  Company Number: FR-BRISTOL-MYERS SQUIBB COMPANY-BMS-2017-092162

PATIENT
  Age: 61 Year
  Sex: Male
  Weight: 66 kg

DRUGS (3)
  1. OROZAMUDOL [Concomitant]
     Active Substance: TRAMADOL
     Indication: HEPATIC PAIN
     Dosage: UNK
     Route: 048
     Dates: start: 20171004
  2. DOLIPRANE [Concomitant]
     Active Substance: ACETAMINOPHEN
     Indication: PRODUCT USED FOR UNKNOWN INDICATION
     Dosage: UNK UNK, PRN
     Route: 048
     Dates: start: 2016
  3. NIVOLUMAB [Suspect]
     Active Substance: NIVOLUMAB
     Indication: SQUAMOUS CELL CARCINOMA OF HEAD AND NECK
     Dosage: 198 MG, UNK
     Route: 042
     Dates: start: 20171005

REACTIONS (1)
  - Device related thrombosis [Not Recovered/Not Resolved]

NARRATIVE: CASE EVENT DATE: 20171012
